FAERS Safety Report 9066999 (Version 1)
Quarter: 2013Q1

REPORT INFORMATION
  Report Type: Spontaneous
  Country: US (occurrence: US)
  Receive Date: 20130128
  Receipt Date: 20130128
  Transmission Date: 20140127
  Serious: No
  Sender: FDA-Public Use
  Company Number: US-ABBOTT-12P-163-0912980-00

PATIENT
  Sex: Female

DRUGS (17)
  1. HUMIRA 40 MG/0.8 ML PEN [Suspect]
     Indication: RHEUMATOID ARTHRITIS
     Dates: start: 20120301
  2. AMLODIPINE [Concomitant]
     Indication: HYPERTENSION
  3. SYNTHROID [Concomitant]
     Indication: HYPOTHYROIDISM
  4. METOPROLOL [Concomitant]
     Indication: HYPERTENSION
  5. PLAVIX [Concomitant]
     Indication: THROMBOSIS PROPHYLAXIS
  6. CITRACAL [Concomitant]
     Indication: VITAMIN SUPPLEMENTATION
  7. MULTIVITAMIN [Concomitant]
     Indication: VITAMIN SUPPLEMENTATION
  8. VITAMIN D [Concomitant]
     Indication: VITAMIN SUPPLEMENTATION
  9. RESTASIS [Concomitant]
     Indication: DRY EYE
  10. LYRICA [Concomitant]
     Indication: PAIN
  11. EVOXAC [Concomitant]
     Indication: DRY MOUTH
  12. CYMBALTA [Concomitant]
     Indication: PAIN
  13. HYDROXYCHLOROQUINE [Concomitant]
     Indication: RHEUMATOID ARTHRITIS
  14. ASPIRIN [Concomitant]
     Indication: CARDIAC DISORDER
  15. CRESTOR [Concomitant]
     Indication: BLOOD CHOLESTEROL INCREASED
  16. VAGIFEM [Concomitant]
     Indication: OESTROGEN REPLACEMENT THERAPY
  17. NITROSTAT [Concomitant]
     Indication: CHEST PAIN

REACTIONS (1)
  - Injection site pain [Recovered/Resolved]
